FAERS Safety Report 8248412-2 (Version None)
Quarter: 2012Q1

REPORT INFORMATION
  Report Type: 
  Country: None (occurrence: None)
  Receive Date: 20120330
  Receipt Date: 20120326
  Transmission Date: 20120608
  Serious: Yes (Other)
  Sender: FDA-Public Use
  Company Number: JP-ABBOTT-12P-087-0918663-00

PATIENT
  Sex: Male

DRUGS (5)
  1. METHOTREXATE [Suspect]
     Indication: RHEUMATOID ARTHRITIS
     Route: 048
  2. HUMIRA [Suspect]
     Indication: RHEUMATOID ARTHRITIS
     Route: 058
     Dates: start: 20120306, end: 20120306
  3. METHOTREXATE [Suspect]
     Dates: start: 20120317
  4. METHOTREXATE [Suspect]
  5. METHOTREXATE [Suspect]

REACTIONS (3)
  - DYSLALIA [None]
  - BLOOD PRESSURE INCREASED [None]
  - GUILLAIN-BARRE SYNDROME [None]
